FAERS Safety Report 17687492 (Version 2)
Quarter: 2020Q2

REPORT INFORMATION
  Report Type: Report from Study
  Country: TW (occurrence: TW)
  Receive Date: 20200421
  Receipt Date: 20200421
  Transmission Date: 20200714
  Serious: Yes (Other)
  Sender: FDA-Public Use
  Company Number: TW-GLAXOSMITHKLINE-TW2020GSK067791

PATIENT
  Age: 32 Year
  Sex: Male

DRUGS (3)
  1. EFAVIRENZ. [Suspect]
     Active Substance: EFAVIRENZ
     Indication: HIV INFECTION
     Dosage: UNK
  2. ABACAVIR SULFATE + LAMIVUDINE [Suspect]
     Active Substance: ABACAVIR SULFATE\LAMIVUDINE
     Indication: HIV INFECTION
     Dosage: UNK
  3. EMTRICITABIN + RILPIVIRIN + TENOFOVIR [Suspect]
     Active Substance: EMTRICITABINE\RILPIVIRINE\TENOFOVIR DISOPROXIL FUMARATE
     Indication: HIV INFECTION
     Dosage: UNK

REACTIONS (3)
  - Virologic failure [Unknown]
  - Pathogen resistance [Unknown]
  - Viral mutation identified [Unknown]
